FAERS Safety Report 5369621-6 (Version None)
Quarter: 2007Q2

REPORT INFORMATION
  Report Type: 
  Country: None (occurrence: None)
  Receive Date: 20070625
  Receipt Date: 20070613
  Transmission Date: 20071010
  Serious: Yes (Other)
  Sender: FDA-Public Use
  Company Number: US-PFIZER INC-2007042209

PATIENT
  Sex: Female
  Weight: 39.5 kg

DRUGS (5)
  1. CHANTIX [Suspect]
     Indication: SMOKING CESSATION THERAPY
     Route: 048
     Dates: start: 20070501, end: 20070501
  2. PERCOCET [Concomitant]
     Indication: BACK PAIN
     Dosage: FREQ:AS NEEDED
     Route: 048
  3. OXYCONTIN [Concomitant]
  4. ATROVENT [Concomitant]
     Route: 055
  5. XOPENEX [Concomitant]
     Route: 055

REACTIONS (5)
  - ABDOMINAL PAIN [None]
  - ABDOMINAL PAIN UPPER [None]
  - ILL-DEFINED DISORDER [None]
  - NAUSEA [None]
  - VOMITING [None]
